FAERS Safety Report 8380529-4 (Version None)
Quarter: 2012Q2

REPORT INFORMATION
  Report Type: 
  Country: None (occurrence: None)
  Receive Date: 20120523
  Receipt Date: 20120514
  Transmission Date: 20120825
  Serious: Yes (Other)
  Sender: FDA-Public Use
  Company Number: US-ASTRAZENECA-2011SE51159

PATIENT
  Age: 70 Year
  Sex: Female
  Weight: 68 kg

DRUGS (4)
  1. COENZYME Q10 [Concomitant]
     Indication: ENZYME SUPPLEMENTATION
     Route: 048
     Dates: start: 20100701
  2. CRESTOR [Suspect]
     Indication: HYPERCHOLESTEROLAEMIA
     Route: 048
     Dates: start: 20090601
  3. CRESTOR [Suspect]
     Route: 048
     Dates: start: 20080101, end: 20100920
  4. ASPIRIN [Concomitant]
     Indication: CARDIOVASCULAR EVENT PROPHYLAXIS
     Route: 048
     Dates: start: 20070101

REACTIONS (2)
  - MUSCULOSKELETAL PAIN [None]
  - ROTATOR CUFF SYNDROME [None]
